FAERS Safety Report 13114917 (Version 3)
Quarter: 2017Q2

REPORT INFORMATION
  Report Type: Report from Study
  Country: US (occurrence: US)
  Receive Date: 20170113
  Receipt Date: 20170412
  Transmission Date: 20170830
  Serious: Yes (Death, Hospitalization, Other)
  Sender: FDA-Public Use
  Company Number: US-BAYER-2016-007108

PATIENT
  Age: 79 Year
  Sex: Male
  Weight: 68.03 kg

DRUGS (7)
  1. OXYCODONE [Concomitant]
     Active Substance: OXYCODONE
     Indication: PAIN
     Dosage: 10 MG Q4HRS
  2. XOFIGO [Suspect]
     Active Substance: RADIUM RA-223 DICHLORIDE
     Indication: PROSTATE CANCER STAGE IV
     Dosage: 101.40UCI; ONCE EVERY 28 DAYS
     Route: 042
     Dates: start: 20151201, end: 20151201
  3. XOFIGO [Suspect]
     Active Substance: RADIUM RA-223 DICHLORIDE
     Indication: METASTASES TO BONE
     Dosage: UNK
     Dates: start: 20160203, end: 20160203
  4. OXYCODONE [Concomitant]
     Active Substance: OXYCODONE
     Indication: PAIN
     Dosage: 20 MG Q4HRS
  5. OXYCONTIN [Concomitant]
     Active Substance: OXYCODONE HYDROCHLORIDE
     Indication: PAIN IN EXTREMITY
     Dosage: UNK
     Dates: start: 20161211
  6. XOFIGO [Suspect]
     Active Substance: RADIUM RA-223 DICHLORIDE
     Indication: PROSTATE CANCER STAGE IV
     Dosage: DAILY DOSE 104.7 MCI
     Route: 042
     Dates: start: 20161101, end: 20161101
  7. DEXAMETHASON [Concomitant]
     Active Substance: DEXAMETHASONE
     Indication: PAIN

REACTIONS (20)
  - Fatigue [None]
  - Chills [None]
  - Dysuria [None]
  - Pancytopenia [None]
  - Asthenia [None]
  - General physical health deterioration [None]
  - Pain in extremity [None]
  - Asthenia [None]
  - Productive cough [None]
  - Death [Fatal]
  - Conjunctivitis [None]
  - Nausea [None]
  - Musculoskeletal disorder [None]
  - Fatigue [None]
  - Anaemia [None]
  - Pain [None]
  - Respiratory tract infection viral [None]
  - Bone marrow failure [None]
  - Insomnia [None]
  - Musculoskeletal pain [None]

NARRATIVE: CASE EVENT DATE: 20160103
